FAERS Safety Report 9518504 (Version 1)
Quarter: 2013Q3

REPORT INFORMATION
  Report Type: Spontaneous
  Country: US (occurrence: US)
  Receive Date: 20130912
  Receipt Date: 20130912
  Transmission Date: 20140515
  Serious: Yes (Other)
  Sender: FDA-Public Use
  Company Number: US-BAYER-2013-108284

PATIENT
  Age: 23 Year
  Sex: Female

DRUGS (2)
  1. GIANVI [Suspect]
     Dosage: UNK
     Route: 048
     Dates: start: 201101
  2. BEYAZ [Suspect]
     Dosage: UNK
     Dates: start: 20130710

REACTIONS (11)
  - Pregnancy on oral contraceptive [Not Recovered/Not Resolved]
  - Drug ineffective [None]
  - Libido decreased [None]
  - Fatigue [None]
  - Vulvovaginal dryness [None]
  - Mood altered [None]
  - Night sweats [None]
  - Insomnia [None]
  - Hot flush [None]
  - Dry skin [None]
  - Blood oestrogen decreased [None]
